FAERS Safety Report 26044929 (Version 1)
Quarter: 2025Q4

REPORT INFORMATION
  Report Type: Spontaneous
  Country: US (occurrence: US)
  Receive Date: 20251114
  Receipt Date: 20251114
  Transmission Date: 20260118
  Serious: No
  Sender: STRIDES
  Company Number: US-STRIDES ARCOLAB LIMITED-2025SP009651

PATIENT
  Age: 64 Year
  Sex: Female

DRUGS (5)
  1. LOSARTAN [Suspect]
     Active Substance: LOSARTAN
     Indication: Stress cardiomyopathy
     Dosage: UNK
     Route: 065
  2. DICLOFENAC SODIUM [Concomitant]
     Active Substance: DICLOFENAC SODIUM
     Indication: Back pain
     Dosage: UNK
     Route: 065
  3. ASPIRIN [Concomitant]
     Active Substance: ASPIRIN
     Indication: Stress cardiomyopathy
     Dosage: UNK
     Route: 065
  4. METOPROLOL [Concomitant]
     Active Substance: METOPROLOL
     Indication: Stress cardiomyopathy
     Dosage: UNK
     Route: 065
  5. DAPAGLIFLOZIN [Concomitant]
     Active Substance: DAPAGLIFLOZIN
     Indication: Stress cardiomyopathy
     Dosage: UNK
     Route: 065

REACTIONS (1)
  - Off label use [Unknown]
